FAERS Safety Report 12699789 (Version 3)
Quarter: 2016Q4

REPORT INFORMATION
  Report Type: Spontaneous
  Country: DE (occurrence: DE)
  Receive Date: 20160830
  Receipt Date: 20161129
  Transmission Date: 20170207
  Serious: Yes (Hospitalization, Other)
  Sender: FDA-Public Use
  Company Number: DE-JNJFOC-20160823032

PATIENT
  Age: 29 Year
  Sex: Female
  Weight: 58 kg

DRUGS (9)
  1. REMICADE [Suspect]
     Active Substance: INFLIXIMAB
     Indication: COLITIS ULCERATIVE
     Route: 042
     Dates: end: 201603
  2. BUSCOPAN [Concomitant]
     Active Substance: BUTYLSCOPOLAMINE BROMIDE
     Route: 065
  3. PALLADON [Concomitant]
     Active Substance: HYDROMORPHONE
     Route: 065
  4. REMICADE [Suspect]
     Active Substance: INFLIXIMAB
     Indication: COLITIS ULCERATIVE
     Route: 042
     Dates: start: 201511
  5. PALLADON [Concomitant]
     Active Substance: HYDROMORPHONE
     Dosage: ON DEMAND
     Route: 065
  6. MAGNESIUM [Concomitant]
     Active Substance: MAGNESIUM
     Route: 065
  7. MESALAZINE [Concomitant]
     Active Substance: MESALAMINE
     Route: 065
  8. NOVALGIN [Concomitant]
     Active Substance: METAMIZOLE SODIUM
     Route: 065
  9. AMITRIPTYLINE [Concomitant]
     Active Substance: AMITRIPTYLINE
     Route: 065

REACTIONS (3)
  - Optic neuritis [Not Recovered/Not Resolved]
  - Diarrhoea haemorrhagic [Unknown]
  - Blister [Recovering/Resolving]

NARRATIVE: CASE EVENT DATE: 201603
